FAERS Safety Report 25095670 (Version 1)
Quarter: 2025Q1

REPORT INFORMATION
  Report Type: Spontaneous
  Country: US (occurrence: US)
  Receive Date: 20250319
  Receipt Date: 20250319
  Transmission Date: 20250409
  Serious: No
  Sender: MERZ
  Company Number: US-BIOGEN-2024BI01267165

PATIENT
  Age: 66 Year
  Sex: Male

DRUGS (2)
  1. AMPYRA [Suspect]
     Active Substance: DALFAMPRIDINE
     Indication: Gait disturbance
     Dosage: 10 MILLIGRAM, BID
     Route: 048
     Dates: start: 202403, end: 202405
  2. AMPYRA [Suspect]
     Active Substance: DALFAMPRIDINE
     Indication: Musculoskeletal stiffness

REACTIONS (1)
  - Dizziness [Not Recovered/Not Resolved]

NARRATIVE: CASE EVENT DATE: 20240301
